FAERS Safety Report 10184947 (Version 1)
Quarter: 2014Q2

REPORT INFORMATION
  Report Type: Spontaneous
  Country: IT (occurrence: IT)
  Receive Date: 20140521
  Receipt Date: 20140521
  Transmission Date: 20141212
  Serious: Yes (Other)
  Sender: FDA-Public Use
  Company Number: IT-MYLANLABS-2014S1010744

PATIENT
  Age: 81 Year
  Sex: Female

DRUGS (4)
  1. METFORMIN [Suspect]
     Indication: DIABETES MELLITUS
     Dosage: 1500 MG DAILY
     Route: 048
     Dates: start: 20130101, end: 20130522
  2. LEVEMIR [Suspect]
     Indication: DIABETES MELLITUS
     Dosage: 8 LU DAILY
     Route: 058
     Dates: start: 20130101, end: 20130522
  3. APIDRA [Suspect]
     Indication: DIABETES MELLITUS
     Dosage: 17 LU DAILY
     Route: 058
     Dates: start: 20130101, end: 20130522
  4. NOVOMIX [Suspect]
     Indication: DIABETES MELLITUS
     Dosage: 10 LU DAILY
     Route: 058
     Dates: start: 20130101, end: 20130522

REACTIONS (2)
  - Confusional state [Recovering/Resolving]
  - Hypoglycaemia [Recovering/Resolving]
